FAERS Safety Report 4804455-X (Version None)
Quarter: 2005Q4

REPORT INFORMATION
  Report Type: 
  Country: None (occurrence: None)
  Receive Date: 20051017
  Receipt Date: 20051007
  Transmission Date: 20060501
  Serious: Yes (Hospitalization)
  Sender: FDA-Public Use
  Company Number: 2005RR-00868

PATIENT
  Age: 74 Year
  Sex: Female

DRUGS (13)
  1. ASPIRIN [Suspect]
     Dosage: 75 MG, QD, ORAL
     Route: 048
     Dates: end: 20050826
  2. WARFARIN SODIUM [Suspect]
     Indication: ATRIAL FIBRILLATION
     Dosage: ORAL
     Route: 048
     Dates: end: 20050826
  3. WARFARIN SODIUM [Concomitant]
  4. CARBAMAZEPINE [Concomitant]
  5. GAVISCON [Concomitant]
  6. SODIUM CHLORIDE [Concomitant]
  7. CALCICHEW [Concomitant]
  8. OILATUM [Concomitant]
  9. CODEINE PHOSPHATE AND ACETAMINOPHEN [Concomitant]
  10. BUMETANIDE [Concomitant]
  11. ASPIRIN [Concomitant]
  12. RAMIPRIL [Concomitant]
  13. DIGOXIN [Concomitant]

REACTIONS (6)
  - DIZZINESS [None]
  - HIATUS HERNIA [None]
  - MELAENA [None]
  - OESOPHAGITIS [None]
  - RECTAL HAEMORRHAGE [None]
  - ULCER [None]
